FAERS Safety Report 4528486-2 (Version None)
Quarter: 2004Q4

REPORT INFORMATION
  Report Type: 
  Country: None (occurrence: None)
  Receive Date: 20041216
  Receipt Date: 20041203
  Transmission Date: 20050328
  Serious: Yes (Hospitalization)
  Sender: FDA-Public Use
  Company Number: JP-JNJFOC-20040900487

PATIENT
  Sex: Female

DRUGS (4)
  1. ITRIZOLE [Suspect]
     Indication: KERION
     Route: 049
  2. GENTAMICIN SULFATE [Concomitant]
     Route: 065
  3. LOXOPROFEN SODIUM [Concomitant]
     Route: 049
  4. SODIUM PICOSULFATE [Concomitant]
     Indication: CONSTIPATION
     Route: 049

REACTIONS (4)
  - MYALGIA [None]
  - POLYMYALGIA RHEUMATICA [None]
  - PYREXIA [None]
  - RASH PUSTULAR [None]
